FAERS Safety Report 16092382 (Version 1)
Quarter: 2019Q1

REPORT INFORMATION
  Report Type: Spontaneous
  Country: US (occurrence: US)
  Receive Date: 20190319
  Receipt Date: 20190319
  Transmission Date: 20190418
  Serious: No
  Sender: FDA-Public Use
  Company Number: US-ACTELION-A-US2019-186743

PATIENT
  Age: 51 Year
  Sex: Female

DRUGS (5)
  1. OPSUMIT [Suspect]
     Active Substance: MACITENTAN
     Indication: PULMONARY HYPERTENSION
     Dosage: 10 MG, QD
     Route: 048
     Dates: start: 201902, end: 20190301
  2. SILDENAFIL. [Concomitant]
     Active Substance: SILDENAFIL
     Indication: PULMONARY ARTERIAL HYPERTENSION
     Dosage: UNK
  3. BISOPROLOL [Concomitant]
     Active Substance: BISOPROLOL
     Dosage: UNK
  4. SPIRONOLACTONE. [Concomitant]
     Active Substance: SPIRONOLACTONE
     Dosage: UNK
  5. TORSEMIDE. [Concomitant]
     Active Substance: TORSEMIDE
     Dosage: UNK

REACTIONS (4)
  - Tinnitus [Recovering/Resolving]
  - Ear congestion [Recovering/Resolving]
  - Therapy non-responder [Unknown]
  - Head discomfort [Unknown]

NARRATIVE: CASE EVENT DATE: 20190218
